FAERS Safety Report 4351231-0 (Version None)
Quarter: 2004Q2

REPORT INFORMATION
  Report Type: 
  Country: None (occurrence: None)
  Receive Date: 20040430
  Receipt Date: 20040430
  Transmission Date: 20050107
  Serious: Yes (Other)
  Sender: FDA-Public Use
  Company Number: None

PATIENT
  Age: 77 Year
  Sex: Male
  Weight: 59.8748 kg

DRUGS (1)
  1. ZOCOR [Suspect]
     Indication: CORONARY ARTERY DISEASE
     Dosage: 20 MG QD ORAL
     Route: 048

REACTIONS (2)
  - AMNESIA [None]
  - DIZZINESS [None]
